FAERS Safety Report 5754777-3 (Version None)
Quarter: 2008Q2

REPORT INFORMATION
  Report Type: 
  Country: None (occurrence: None)
  Receive Date: 20080527
  Receipt Date: 20080507
  Transmission Date: 20081010
  Serious: Yes (Other)
  Sender: FDA-Public Use
  Company Number: 2008AL003921

PATIENT
  Age: 65 Year
  Sex: Male
  Weight: 93.441 kg

DRUGS (7)
  1. DIGOXIN [Suspect]
     Indication: CARDIAC DISORDER
     Dosage: 0.25 MG, DAILY PO
     Route: 048
     Dates: start: 20070101
  2. GLIPIZIDE [Concomitant]
  3. METFORMIN HCL [Concomitant]
  4. SIMVASTATIN [Concomitant]
  5. ALPRAZOLAM [Concomitant]
  6. BENAZAPRIL [Concomitant]
  7. OXYCONTIN [Concomitant]

REACTIONS (5)
  - DIZZINESS [None]
  - HEADACHE [None]
  - PAIN [None]
  - PARAESTHESIA [None]
  - TREMOR [None]
